FAERS Safety Report 6599485-4 (Version None)
Quarter: 2010Q1

REPORT INFORMATION
  Report Type: 
  Country: None (occurrence: None)
  Receive Date: 20100216
  Receipt Date: 20100202
  Transmission Date: 20100710
  Serious: Yes (Other)
  Sender: FDA-Public Use
  Company Number: B0632616A

PATIENT

DRUGS (2)
  1. TRIZIVIR [Suspect]
     Indication: HIV INFECTION
     Dosage: 1 TABLET / TWICE PER DAY / ORAL
     Route: 048
  2. ANTI-TB MEDICATION [Concomitant]

REACTIONS (2)
  - ANAEMIA [None]
  - DRUG TOXICITY [None]
